FAERS Safety Report 7577807-5 (Version None)
Quarter: 2011Q2

REPORT INFORMATION
  Report Type: 
  Country: None (occurrence: None)
  Receive Date: 20110628
  Receipt Date: 20110615
  Transmission Date: 20111010
  Serious: Yes (Disabling)
  Sender: FDA-Public Use
  Company Number: PHHY2011US15646

PATIENT
  Sex: Female

DRUGS (12)
  1. VITAMIN D [Concomitant]
     Dosage: 2000 U, QD
  2. ZANTAC [Concomitant]
     Dosage: 150 MG, QD
  3. SILODOSIN [Concomitant]
     Dosage: 8 MG, QD
  4. EXELON [Suspect]
     Dosage: 4.6 MG, DAILY
     Route: 062
  5. BELLADONNA [Concomitant]
  6. TRIMETHOPRIM [Concomitant]
  7. ACIPHEX [Concomitant]
     Indication: DYSPEPSIA
  8. PHENERGAN HCL [Concomitant]
     Indication: NAUSEA
  9. EXELON [Suspect]
     Dosage: 9.5 MG, DAILY
     Route: 062
  10. LANTUS [Concomitant]
     Indication: DIABETES MELLITUS
     Dosage: 38 U, QD
  11. BACLOFEN [Concomitant]
  12. HUMALOG [Concomitant]

REACTIONS (4)
  - HYPOKINESIA [None]
  - MALAISE [None]
  - NASOPHARYNGITIS [None]
  - WRONG TECHNIQUE IN DRUG USAGE PROCESS [None]
